FAERS Safety Report 4860964-9 (Version None)
Quarter: 2005Q4

REPORT INFORMATION
  Report Type: 
  Country: None (occurrence: None)
  Receive Date: 20051216
  Receipt Date: 20051124
  Transmission Date: 20060501
  Serious: No
  Sender: FDA-Public Use
  Company Number: AU200511003442

PATIENT
  Sex: Male

DRUGS (1)
  1. CIALIS [Suspect]
     Indication: ERECTILE DYSFUNCTION
     Dosage: 20 MG, AS NEEDED, ORAL
     Route: 048
     Dates: start: 20050101

REACTIONS (1)
  - VISION BLURRED [None]
